FAERS Safety Report 17126070 (Version 6)
Quarter: 2020Q1

REPORT INFORMATION
  Report Type: Report from Study
  Country: US (occurrence: US)
  Receive Date: 20191209
  Receipt Date: 20200225
  Transmission Date: 20200409
  Serious: No
  Sender: FDA-Public Use
  Company Number: NVSC2019US062605

PATIENT
  Age: 89 Year
  Sex: Male

DRUGS (1)
  1. ENTRESTO [Suspect]
     Active Substance: SACUBITRIL\VALSARTAN
     Indication: CARDIAC FAILURE
     Dosage: 1 DF (24/26 MG), BID
     Route: 048
     Dates: start: 20191112

REACTIONS (4)
  - Constipation [Recovering/Resolving]
  - Hypertension [Not Recovered/Not Resolved]
  - Fatigue [Unknown]
  - Contusion [Unknown]

NARRATIVE: CASE EVENT DATE: 20191130
